FAERS Safety Report 10164986 (Version 1)
Quarter: 2014Q2

REPORT INFORMATION
  Report Type: Spontaneous
  Country: US (occurrence: US)
  Receive Date: 20140510
  Receipt Date: 20140510
  Transmission Date: 20141212
  Serious: No
  Sender: FDA-Public Use
  Company Number: US-BRISTOL-MYERS SQUIBB COMPANY-19671726

PATIENT
  Sex: Female

DRUGS (5)
  1. BYDUREON [Suspect]
     Indication: TYPE 2 DIABETES MELLITUS
     Dosage: 22OCT2013
     Route: 058
     Dates: start: 20130922
  2. METFORMIN HCL [Suspect]
  3. LOSARTAN [Concomitant]
  4. OXYBUTYNIN [Concomitant]
  5. LEVOTIROXINA [Concomitant]

REACTIONS (1)
  - Drug ineffective [Unknown]
